FAERS Safety Report 16528592 (Version 1)
Quarter: 2019Q3

REPORT INFORMATION
  Report Type: Spontaneous
  Country: DE (occurrence: DE)
  Receive Date: 20190703
  Receipt Date: 20190703
  Transmission Date: 20191004
  Serious: Yes (Other)
  Sender: FDA-Public Use
  Company Number: PHHY2019DE152224

PATIENT
  Age: 62 Year
  Sex: Male

DRUGS (3)
  1. L-THYROX HEXAL [Suspect]
     Active Substance: LEVOTHYROXINE SODIUM
     Indication: PRODUCT USED FOR UNKNOWN INDICATION
     Dosage: QD
     Route: 065
  2. METFORMIN [Suspect]
     Active Substance: METFORMIN HYDROCHLORIDE
     Indication: PRODUCT USED FOR UNKNOWN INDICATION
     Dosage: QD
     Route: 065
  3. ALLOPURINOL HEXAL [Suspect]
     Active Substance: ALLOPURINOL
     Indication: GOUT
     Dosage: QD (1-0-0)
     Route: 065

REACTIONS (3)
  - White blood cell disorder [Unknown]
  - Non-Hodgkin^s lymphoma [Unknown]
  - Diabetes mellitus [Unknown]

NARRATIVE: CASE EVENT DATE: 2017
